FAERS Safety Report 17352945 (Version 5)
Quarter: 2020Q2

REPORT INFORMATION
  Report Type: Spontaneous
  Country: US (occurrence: US)
  Receive Date: 20200131
  Receipt Date: 20200505
  Transmission Date: 20200713
  Serious: No
  Sender: FDA-Public Use
  Company Number: US-AMGEN-USASP2020015146

PATIENT
  Age: 81 Year
  Sex: Female
  Weight: 79.37 kg

DRUGS (2)
  1. TYMLOS [Concomitant]
     Active Substance: ABALOPARATIDE
     Indication: OSTEOPOROSIS
     Dosage: 80 MILLIGRAM, QD
     Dates: start: 20190701, end: 20190707
  2. EVENITY [Suspect]
     Active Substance: ROMOSOZUMAB-AQQG
     Indication: PRODUCT USED FOR UNKNOWN INDICATION
     Dosage: UNK
     Route: 065
     Dates: start: 2019

REACTIONS (2)
  - Eyelid disorder [Not Recovered/Not Resolved]
  - Vision blurred [Not Recovered/Not Resolved]
